FAERS Safety Report 8232414-6 (Version None)
Quarter: 2012Q1

REPORT INFORMATION
  Report Type: 
  Country: None (occurrence: None)
  Receive Date: 20120320
  Receipt Date: 20120320
  Transmission Date: 20120608
  Serious: Yes (Hospitalization, Disabling, Other)
  Sender: FDA-Public Use
  Company Number: 2011SP030647

PATIENT
  Age: 33 Year
  Sex: Female
  Weight: 81.1939 kg

DRUGS (4)
  1. MIRENA [Suspect]
     Indication: PRODUCT USED FOR UNKNOWN INDICATION
     Dates: end: 20090810
  2. NUVARING [Suspect]
     Indication: CONTRACEPTION
     Dates: start: 20060501, end: 20090801
  3. NUVARING [Suspect]
     Indication: CONTRACEPTION
     Dates: start: 20070501, end: 20090801
  4. PHENDIMETRAZINE FUMARATE [Concomitant]

REACTIONS (75)
  - BACK INJURY [None]
  - JOINT INJURY [None]
  - MUSCULOSKELETAL CHEST PAIN [None]
  - TACHYCARDIA [None]
  - PHARYNGITIS [None]
  - LUNG NEOPLASM [None]
  - DIPLOPIA [None]
  - CAROTID ARTERY DISSECTION [None]
  - GINGIVAL BLEEDING [None]
  - UPPER-AIRWAY COUGH SYNDROME [None]
  - SNORING [None]
  - DYSPNOEA [None]
  - BLOOD TRIGLYCERIDES INCREASED [None]
  - DYSPNOEA EXERTIONAL [None]
  - WEIGHT INCREASED [None]
  - HYPERLIPIDAEMIA [None]
  - JOINT INSTABILITY [None]
  - HEAD INJURY [None]
  - HYPERTENSION [None]
  - TONSILLECTOMY [None]
  - ARTHROPOD BITE [None]
  - CELLULITIS [None]
  - PROTEIN C DEFICIENCY [None]
  - INTERNATIONAL NORMALISED RATIO DECREASED [None]
  - CHRONIC SINUSITIS [None]
  - HEADACHE [None]
  - MUSCLE SPASMS [None]
  - AGORAPHOBIA [None]
  - PULMONARY ARTERIAL HYPERTENSION [None]
  - TREATMENT NONCOMPLIANCE [None]
  - FEAR [None]
  - PRODUCT QUALITY ISSUE [None]
  - DEPRESSION [None]
  - PAIN [None]
  - OBESITY [None]
  - NASAL POLYPS [None]
  - GENERALISED ANXIETY DISORDER [None]
  - CERVICAL DYSPLASIA [None]
  - COLLATERAL CIRCULATION [None]
  - PALPITATIONS [None]
  - OBSTRUCTIVE AIRWAYS DISORDER [None]
  - HERPES SIMPLEX [None]
  - PATELLOFEMORAL PAIN SYNDROME [None]
  - SOMNOLENCE [None]
  - CERVICITIS HUMAN PAPILLOMA VIRUS [None]
  - VOCAL CORD DISORDER [None]
  - SINUS POLYP [None]
  - HEART VALVE INCOMPETENCE [None]
  - ARTHRALGIA [None]
  - OSTEOARTHRITIS [None]
  - PANIC ATTACK [None]
  - CHEST DISCOMFORT [None]
  - TRICUSPID VALVE INCOMPETENCE [None]
  - MYALGIA [None]
  - MYOSITIS [None]
  - CAROTID ARTERY OCCLUSION [None]
  - MUSCULOSKELETAL PAIN [None]
  - FIBRIN D DIMER INCREASED [None]
  - ROTATOR CUFF SYNDROME [None]
  - INSOMNIA [None]
  - LEFT VENTRICULAR HYPERTROPHY [None]
  - CARPAL TUNNEL SYNDROME [None]
  - DYSPEPSIA [None]
  - GASTROOESOPHAGEAL REFLUX DISEASE [None]
  - MIGRAINE [None]
  - INTERNATIONAL NORMALISED RATIO INCREASED [None]
  - ATELECTASIS [None]
  - PULMONARY FIBROSIS [None]
  - NASAL CYST [None]
  - REFLUX LARYNGITIS [None]
  - ARTHRITIS [None]
  - DIARRHOEA [None]
  - PULMONARY EMBOLISM [None]
  - ORAL SURGERY [None]
  - CHEST PAIN [None]
